FAERS Safety Report 24589331 (Version 1)
Quarter: 2024Q4

REPORT INFORMATION
  Report Type: Spontaneous
  Country: US (occurrence: US)
  Receive Date: 20241107
  Receipt Date: 20241107
  Transmission Date: 20250114
  Serious: Yes (Death, Life-Threatening, Hospitalization)
  Sender: DR REDDYS
  Company Number: None

PATIENT
  Age: 54 Year
  Sex: Male

DRUGS (4)
  1. ALLOPURINOL [Suspect]
     Active Substance: ALLOPURINOL
     Indication: Gout
     Dates: start: 2023
  2. VANCOMYCIN [Suspect]
     Active Substance: VANCOMYCIN
     Indication: Sepsis
     Dates: start: 202308
  3. SODIUM BICARBONATE [Concomitant]
     Active Substance: SODIUM BICARBONATE
     Indication: Product used for unknown indication
     Dates: start: 202308
  4. REMDESIVIR [Concomitant]
     Active Substance: REMDESIVIR
     Indication: COVID-19
     Dates: start: 202308, end: 202308

REACTIONS (7)
  - Haemophagocytic lymphohistiocytosis [Fatal]
  - Cardio-respiratory arrest [Fatal]
  - Drug reaction with eosinophilia and systemic symptoms [Unknown]
  - Rhabdomyolysis [Unknown]
  - Toxic epidermal necrolysis [Unknown]
  - Disseminated intravascular coagulation [Unknown]
  - Drug interaction [Unknown]

NARRATIVE: CASE EVENT DATE: 20230801
